FAERS Safety Report 7823087-2 (Version None)
Quarter: 2011Q4

REPORT INFORMATION
  Report Type: 
  Country: None (occurrence: None)
  Receive Date: 20111019
  Receipt Date: 20111007
  Transmission Date: 20120403
  Serious: Yes (Hospitalization, Other)
  Sender: FDA-Public Use
  Company Number: FR-AMGEN-FRASP2011030054

PATIENT
  Age: 46 Year
  Sex: Female
  Weight: 74 kg

DRUGS (3)
  1. ENBREL [Suspect]
     Indication: PRODUCT USED FOR UNKNOWN INDICATION
     Dosage: 50 MG, WEEKLY
     Dates: start: 20080101
  2. ESCITALOPRAM OXALATE [Suspect]
     Dosage: UNK
  3. PAROXETINE HCL [Suspect]
     Dosage: UNK

REACTIONS (4)
  - MAJOR DEPRESSION [None]
  - TREMOR [None]
  - SUICIDAL IDEATION [None]
  - CONVERSION DISORDER [None]
